FAERS Safety Report 6927327 (Version 6)
Quarter: 2020Q2

REPORT INFORMATION
  Report Type: Spontaneous
  Country: FR (occurrence: FR)
  Receive Date: 20090304
  Receipt Date: 20200407
  Transmission Date: 20200714
  Serious: Yes (Hospitalization, Other)
  Sender: FDA-Public Use
  Company Number: FR-GILEAD-2009-0020444

PATIENT
  Age: 25 Year
  Sex: Female
  Weight: 56 kg

DRUGS (7)
  1. COMBIVIR [Suspect]
     Active Substance: LAMIVUDINE\ZIDOVUDINE
     Indication: HIV INFECTION
     Dosage: 200 MG, 1D
     Route: 065
     Dates: start: 20050908
  2. SUSTIVA [Suspect]
     Active Substance: EFAVIRENZ
     Indication: HIV INFECTION
     Dosage: 600 MG, 1D
     Route: 065
     Dates: start: 20050523, end: 20050908
  3. VIDEX [Suspect]
     Active Substance: DIDANOSINE
     Indication: HIV INFECTION
     Dosage: UNK UNK, U
     Route: 065
     Dates: start: 20050523, end: 20050908
  4. KALETRA [Suspect]
     Active Substance: LOPINAVIR\RITONAVIR
     Indication: HIV INFECTION
     Dosage: UNK UNK, U
     Route: 065
     Dates: start: 20050908
  5. VIRAMUNE [Suspect]
     Active Substance: NEVIRAPINE
     Indication: HIV INFECTION
     Dosage: 400 MG, QD
     Route: 048
     Dates: start: 20050620
  6. EMTRICITABINE [Suspect]
     Active Substance: EMTRICITABINE
     Indication: HIV INFECTION
     Dosage: 200 MG, 1D
     Route: 065
     Dates: start: 20050523
  7. VIRAMUNE [Suspect]
     Active Substance: NEVIRAPINE
     Dosage: 400 MG, QD
     Route: 048
     Dates: start: 20050704

REACTIONS (4)
  - Abortion induced [Recovered/Resolved]
  - Insomnia [Unknown]
  - Vertigo [Unknown]
  - Maternal exposure during pregnancy [Recovered/Resolved]

NARRATIVE: CASE EVENT DATE: 20050813
